FAERS Safety Report 6160519-2 (Version None)
Quarter: 2009Q2

REPORT INFORMATION
  Report Type: 
  Country: None (occurrence: None)
  Receive Date: 20090420
  Receipt Date: 20090414
  Transmission Date: 20091009
  Serious: Yes (Hospitalization)
  Sender: FDA-Public Use
  Company Number: US-MERCK-0904USA02073

PATIENT
  Age: 97 Year
  Sex: Female

DRUGS (2)
  1. COZAAR [Suspect]
     Route: 048
  2. COZAAR [Suspect]
     Route: 048
     Dates: start: 20090301, end: 20090301

REACTIONS (4)
  - HYPERTENSION [None]
  - INCORRECT DOSE ADMINISTERED [None]
  - LUNG DISORDER [None]
  - OVERDOSE [None]
